FAERS Safety Report 6117489-2 (Version None)
Quarter: 2009Q1

REPORT INFORMATION
  Report Type: 
  Country: None (occurrence: None)
  Receive Date: 20090314
  Receipt Date: 20090116
  Transmission Date: 20090719
  Serious: No
  Sender: FDA-Public Use
  Company Number: US-ABBOTT-09P-163-0498522-00

PATIENT
  Sex: Female
  Weight: 95.34 kg

DRUGS (17)
  1. HUMIRA [Suspect]
     Indication: OSTEOARTHRITIS
     Route: 058
     Dates: start: 20081001
  2. HUMIRA [Suspect]
     Indication: PSORIASIS
  3. HUMIRA [Suspect]
     Indication: FIBROMYALGIA
  4. WELLBUTRIN [Concomitant]
     Indication: DEPRESSION
     Route: 048
  5. BUSPIRONE HCL [Concomitant]
     Indication: ANXIETY
     Route: 048
  6. BUSPIRONE HCL [Concomitant]
     Indication: DEPRESSION
  7. ASPIRIN [Concomitant]
     Indication: DRUG USE FOR UNKNOWN INDICATION
     Route: 048
  8. HYDROCHLOROTHIAZIDE [Concomitant]
     Indication: HYPERTENSION
     Route: 048
  9. LEVOTHYROXINE SODIUM [Concomitant]
     Indication: HYPOTHYROIDISM
     Route: 048
  10. MELOXICAM [Concomitant]
     Indication: ARTHRALGIA
     Route: 048
  11. MELOXICAM [Concomitant]
     Indication: FIBROMYALGIA
  12. METOPROLOL TARTRATE [Concomitant]
     Indication: HYPERTENSION
     Route: 048
  13. OMEPRAZOLE [Concomitant]
     Indication: DIARRHOEA
     Route: 048
  14. OMEPRAZOLE [Concomitant]
     Indication: NAUSEA
  15. LOVASTATIN [Concomitant]
     Indication: BLOOD CHOLESTEROL INCREASED
     Route: 048
  16. SERTRALINE [Concomitant]
     Indication: DEPRESSION
     Route: 048
  17. TRAZODONE HCL [Concomitant]
     Indication: INSOMNIA
     Dosage: ONE TAKEN AT BEDTIME
     Route: 048

REACTIONS (1)
  - DRUG INEFFECTIVE [None]
